FAERS Safety Report 24323981 (Version 2)
Quarter: 2024Q4

REPORT INFORMATION
  Report Type: Spontaneous
  Country: FR (occurrence: FR)
  Receive Date: 20240916
  Receipt Date: 20241024
  Transmission Date: 20250115
  Serious: Yes (Life-Threatening, Other)
  Sender: FRESENIUS KABI
  Company Number: None

PATIENT
  Age: 75 Year
  Sex: Male
  Weight: 59.6 kg

DRUGS (24)
  1. LIDOCAINE [Suspect]
     Active Substance: LIDOCAINE
     Indication: Anaesthesia
     Dosage: 50 MILLIGRAM, 1 DOSAGE TOTAL
     Route: 042
     Dates: start: 20240724, end: 20240724
  2. LIDOCAINE [Suspect]
     Active Substance: LIDOCAINE
     Dosage: 50 MILLIGRAM, 1 DOSAGE TOTAL
     Route: 042
     Dates: start: 20240724, end: 20240724
  3. LIDOCAINE [Suspect]
     Active Substance: LIDOCAINE
     Dosage: 50 MILLIGRAM, 1 DOSAGE TOTAL
     Route: 042
     Dates: start: 20240724, end: 20240724
  4. LIDOCAINE [Suspect]
     Active Substance: LIDOCAINE
     Dosage: 50 MILLIGRAM, 1 DOSAGE TOTAL
     Route: 042
     Dates: start: 20240724, end: 20240724
  5. ATRACURIUM [Suspect]
     Active Substance: ATRACURIUM
     Indication: Anaesthesia
     Dosage: 50 MILLIGRAM, 1 DOSAGE TOTAL
     Route: 042
     Dates: start: 20240724, end: 20240724
  6. ATRACURIUM [Suspect]
     Active Substance: ATRACURIUM
     Dosage: 50 MILLIGRAM, 1 DOSAGE TOTAL
     Route: 042
     Dates: start: 20240724, end: 20240724
  7. ATRACURIUM [Suspect]
     Active Substance: ATRACURIUM
     Dosage: 50 MILLIGRAM, 1 DOSAGE TOTAL
     Route: 042
     Dates: start: 20240724, end: 20240724
  8. ATRACURIUM [Suspect]
     Active Substance: ATRACURIUM
     Dosage: 50 MILLIGRAM, 1 DOSAGE TOTAL
     Route: 042
     Dates: start: 20240724, end: 20240724
  9. METRONIDAZOLE [Suspect]
     Active Substance: METRONIDAZOLE
     Indication: Antifungal prophylaxis
     Dosage: 3 DOSAGE FORM, 1 DOSAGE TOTAL
     Route: 048
     Dates: start: 20240723, end: 20240724
  10. METRONIDAZOLE [Suspect]
     Active Substance: METRONIDAZOLE
     Dosage: 3 DOSAGE FORM, 1 DOSAGE TOTAL
     Route: 048
     Dates: start: 20240723, end: 20240724
  11. METRONIDAZOLE [Suspect]
     Active Substance: METRONIDAZOLE
     Dosage: 3 DOSAGE FORM, 1 DOSAGE TOTAL
     Route: 048
     Dates: start: 20240723, end: 20240724
  12. METRONIDAZOLE [Suspect]
     Active Substance: METRONIDAZOLE
     Dosage: 3 DOSAGE FORM, 1 DOSAGE TOTAL
     Route: 048
     Dates: start: 20240723, end: 20240724
  13. SUFENTANIL [Suspect]
     Active Substance: SUFENTANIL
     Indication: Anaesthesia
     Dosage: 15 MICROGRAM, 1 DOSAGE TOTAL
     Route: 042
     Dates: start: 20240724, end: 20240724
  14. SUFENTANIL [Suspect]
     Active Substance: SUFENTANIL
     Dosage: 15 MICROGRAM, 1 DOSAGE TOTAL
     Route: 042
     Dates: start: 20240724, end: 20240724
  15. SUFENTANIL [Suspect]
     Active Substance: SUFENTANIL
     Dosage: 15 MICROGRAM, 1 DOSAGE TOTAL
     Route: 042
     Dates: start: 20240724, end: 20240724
  16. SUFENTANIL [Suspect]
     Active Substance: SUFENTANIL
     Dosage: 15 MICROGRAM, 1 DOSAGE TOTAL
     Route: 042
     Dates: start: 20240724, end: 20240724
  17. KETAMINE HYDROCHLORIDE [Suspect]
     Active Substance: KETAMINE HYDROCHLORIDE
     Indication: Anaesthesia
     Dosage: 15 MILLIGRAM, 1 DOSAGE TOTAL
     Route: 042
     Dates: start: 20240724, end: 20240724
  18. KETAMINE HYDROCHLORIDE [Suspect]
     Active Substance: KETAMINE HYDROCHLORIDE
     Dosage: 15 MILLIGRAM, 1 DOSAGE TOTAL
     Route: 042
     Dates: start: 20240724, end: 20240724
  19. KETAMINE HYDROCHLORIDE [Suspect]
     Active Substance: KETAMINE HYDROCHLORIDE
     Dosage: 15 MILLIGRAM, 1 DOSAGE TOTAL
     Route: 042
     Dates: start: 20240724, end: 20240724
  20. KETAMINE HYDROCHLORIDE [Suspect]
     Active Substance: KETAMINE HYDROCHLORIDE
     Dosage: 15 MILLIGRAM, 1 DOSAGE TOTAL
     Route: 042
     Dates: start: 20240724, end: 20240724
  21. PROPOFOL [PROPOFOL] [Concomitant]
     Indication: Anaesthesia
     Dosage: 170 MILLIGRAM, 1 DOSAGE TOTAL
     Route: 042
     Dates: start: 20240724, end: 20240724
  22. PROPOFOL [PROPOFOL] [Concomitant]
     Dosage: 170 MILLIGRAM, 1 DOSAGE TOTAL
     Route: 042
     Dates: start: 20240724, end: 20240724
  23. PROPOFOL [PROPOFOL] [Concomitant]
     Dosage: 170 MILLIGRAM, 1 DOSAGE TOTAL
     Route: 042
     Dates: start: 20240724, end: 20240724
  24. PROPOFOL [PROPOFOL] [Concomitant]
     Dosage: 170 MILLIGRAM, 1 DOSAGE TOTAL
     Route: 042
     Dates: start: 20240724, end: 20240724

REACTIONS (1)
  - Anaphylactic shock [Recovered/Resolved]

NARRATIVE: CASE EVENT DATE: 20240724
